FAERS Safety Report 9395594 (Version 1)
Quarter: 2013Q3

REPORT INFORMATION
  Report Type: Spontaneous
  Country: JP (occurrence: JP)
  Receive Date: 20130711
  Receipt Date: 20130711
  Transmission Date: 20140515
  Serious: Yes (Other)
  Sender: FDA-Public Use
  Company Number: PHHY2013JP072657

PATIENT
  Sex: Female

DRUGS (15)
  1. RIBAVIRIN [Suspect]
     Indication: VIRAEMIA
     Dosage: 400 MG, QD
  2. CLOPIDOGREL [Suspect]
     Indication: PERIPHERAL ARTERIAL OCCLUSIVE DISEASE
     Dosage: 1 DF, QD
  3. TELAVIC [Suspect]
     Indication: VIRAEMIA
     Dosage: 1500 MG, QD
  4. PEGINTERFERON ALFA-2B [Suspect]
     Indication: VIRAEMIA
     Dosage: 1.5 UG/KG, QW
  5. AMLODIPINE BESILATE [Concomitant]
  6. LANSOPRAZOLE [Concomitant]
  7. OLMESARTAN MEDOXOMIL [Concomitant]
  8. ROSUVASTATIN CALCIUM [Concomitant]
  9. TEPRENONE [Concomitant]
  10. NICORANDIL [Concomitant]
  11. REBAMIPIDE [Concomitant]
  12. TRAZODONE HYDROCHLORIDE [Concomitant]
  13. ETIZOLAM [Concomitant]
  14. ZOLPIDEM TARTRATE [Concomitant]
  15. CEFCAPENE PIVOXIL HYDROCHLORIDE [Concomitant]

REACTIONS (11)
  - Renal failure [Recovered/Resolved]
  - Pollakiuria [Recovered/Resolved]
  - Cystitis [Recovered/Resolved]
  - Gastrointestinal haemorrhage [Recovered/Resolved]
  - Malaise [Recovered/Resolved]
  - Diarrhoea [Recovering/Resolving]
  - Decreased appetite [Recovering/Resolving]
  - Haemoglobin decreased [Recovered/Resolved]
  - Platelet count decreased [Recovered/Resolved]
  - Rash [Recovered/Resolved]
  - Pruritus [Recovering/Resolving]
